FAERS Safety Report 7531855-X (Version None)
Quarter: 2011Q2

REPORT INFORMATION
  Report Type: 
  Country: None (occurrence: None)
  Receive Date: 20110601
  Receipt Date: 20110525
  Transmission Date: 20111010
  Serious: Yes (Other)
  Sender: FDA-Public Use
  Company Number: 1000021166

PATIENT
  Sex: Female

DRUGS (1)
  1. LEXAPRO [Suspect]
     Indication: DEPRESSION
     Dates: start: 20090101, end: 20090101

REACTIONS (5)
  - HEMIPLEGIA [None]
  - HEART RATE DECREASED [None]
  - SPEECH DISORDER [None]
  - CONVULSION [None]
  - MIGRAINE [None]
